FAERS Safety Report 5870146-X (Version None)
Quarter: 2008Q3

REPORT INFORMATION
  Report Type: 
  Country: None (occurrence: None)
  Receive Date: 20080904
  Receipt Date: 20080826
  Transmission Date: 20090109
  Serious: Yes (Other)
  Sender: FDA-Public Use
  Company Number: US-BAYER-200830661NA

PATIENT
  Sex: Female

DRUGS (1)
  1. AVELOX [Suspect]
     Indication: DRUG USE FOR UNKNOWN INDICATION
     Dosage: TOTAL DAILY DOSE: 400 MG  UNIT DOSE: 400 MG
     Route: 048
     Dates: start: 20041116

REACTIONS (8)
  - BLOOD PRESSURE DECREASED [None]
  - CHILLS [None]
  - DIZZINESS [None]
  - ERYTHEMA [None]
  - HEART RATE INCREASED [None]
  - HYPERSENSITIVITY [None]
  - URTICARIA [None]
  - VOMITING [None]
